FAERS Safety Report 7373216-2 (Version None)
Quarter: 2011Q1

REPORT INFORMATION
  Report Type: 
  Country: None (occurrence: None)
  Receive Date: 20110324
  Receipt Date: 20110317
  Transmission Date: 20110831
  Serious: Yes (Hospitalization, Other)
  Sender: FDA-Public Use
  Company Number: US-GENENTECH-269929

PATIENT
  Sex: Female
  Weight: 107.3 kg

DRUGS (15)
  1. ADVAIR DISKUS 100/50 [Concomitant]
     Indication: ASTHMA
     Dosage: UNK
     Dates: start: 20010101
  2. ALBUTEROL [Concomitant]
     Indication: ASTHMA
     Dosage: UNK
     Dates: start: 19900101
  3. OXYGEN [Concomitant]
     Indication: CHRONIC OBSTRUCTIVE PULMONARY DISEASE
     Dosage: 20 L/MIN, UNK
     Dates: start: 20080101
  4. XOPENEX [Concomitant]
     Indication: ASTHMA
     Dosage: UNK
     Route: 055
     Dates: start: 20081202
  5. CLARITIN [Suspect]
     Indication: HYPERSENSITIVITY
     Dosage: UNK
     Dates: start: 20070701
  6. SPIRIVA [Concomitant]
     Indication: CHRONIC OBSTRUCTIVE PULMONARY DISEASE
     Dosage: 18 UNK, QD
     Dates: start: 20080625
  7. XOLAIR [Suspect]
     Indication: ASTHMA
     Dosage: 300 MG, Q4W
     Route: 058
     Dates: start: 20080812, end: 20081015
  8. SOLU-MEDROL [Suspect]
     Indication: CHRONIC OBSTRUCTIVE PULMONARY DISEASE
     Dosage: UNK
     Route: 048
     Dates: start: 20080201
  9. SYNTHROID [Concomitant]
     Indication: THYROID DISORDER
     Dosage: UNK
     Route: 048
     Dates: start: 19990201
  10. SINGULAIR [Concomitant]
     Indication: ASTHMA
     Dosage: 10 MG, QD
     Dates: start: 20080715
  11. ASPIRIN [Concomitant]
     Indication: PROPHYLAXIS
     Dosage: 81 MG, QD
     Route: 048
     Dates: start: 20080625
  12. LEVAQUIN [Concomitant]
     Indication: PRODUCT USED FOR UNKNOWN INDICATION
  13. PROTONIX [Concomitant]
     Indication: GASTROOESOPHAGEAL REFLUX DISEASE
     Dosage: 40 UNK, QD
     Route: 048
     Dates: start: 19990201
  14. NEBULIZER (UNK INGREDIENTS) [Concomitant]
     Indication: ASTHMA
     Dosage: UNK
     Dates: start: 19990501
  15. NEBULIZER (UNK INGREDIENTS) [Concomitant]
     Indication: CHRONIC OBSTRUCTIVE PULMONARY DISEASE

REACTIONS (1)
  - ANAPHYLACTIC REACTION [None]
